FAERS Safety Report 16192218 (Version 2)
Quarter: 2019Q4

REPORT INFORMATION
  Report Type: Report from Study
  Country: US (occurrence: US)
  Receive Date: 20190412
  Receipt Date: 20191118
  Transmission Date: 20200122
  Serious: Yes (Hospitalization, Other)
  Sender: FDA-Public Use
  Company Number: US-ACTELION-A-NJ2019-188912

PATIENT
  Age: 64 Year
  Sex: Female

DRUGS (23)
  1. SYMBICORT [Concomitant]
     Active Substance: BUDESONIDE\FORMOTEROL FUMARATE DIHYDRATE
  2. CALCIUM ACETATE. [Concomitant]
     Active Substance: CALCIUM ACETATE
  3. CAPSAICIN. [Concomitant]
     Active Substance: CAPSAICIN
     Route: 061
  4. TADALAFIL. [Concomitant]
     Active Substance: TADALAFIL
  5. CARVEDILOL. [Concomitant]
     Active Substance: CARVEDILOL
  6. NEPHRO VITE RX [Concomitant]
     Active Substance: ASCORBIC ACID\BIOTIN\CALCIUM PANTOTHENATE\CYANOCOBALAMIN\FOLIC ACID\NIACINAMIDE\PYRIDOXINE HYDROCHLORIDE\RIBOFLAVIN\THIAMINE MONONITRATE
  7. HYDRALAZINE [Concomitant]
     Active Substance: HYDRALAZINE HYDROCHLORIDE
  8. ALBUTEROL HFA [Concomitant]
     Active Substance: ALBUTEROL SULFATE
  9. TRAMADOL. [Concomitant]
     Active Substance: TRAMADOL
  10. AMLODIPINE [Concomitant]
     Active Substance: AMLODIPINE BESYLATE
  11. BENZONATATE. [Concomitant]
     Active Substance: BENZONATATE
  12. OPSUMIT [Suspect]
     Active Substance: MACITENTAN
     Indication: PULMONARY HYPERTENSION
     Dosage: 10 MG, QD
     Route: 048
     Dates: start: 20190205
  13. RENVELA [Concomitant]
     Active Substance: SEVELAMER CARBONATE
  14. LIDOCAINE. [Concomitant]
     Active Substance: LIDOCAINE
     Route: 061
  15. OMEGA 3 + 6 COMPLEX [Concomitant]
  16. FLONASE [Concomitant]
     Active Substance: FLUTICASONE PROPIONATE
  17. NORCO [Concomitant]
     Active Substance: ACETAMINOPHEN\HYDROCODONE BITARTRATE
  18. TYLENOL [Concomitant]
     Active Substance: ACETAMINOPHEN
  19. TURMERIC [Concomitant]
     Active Substance: HERBALS\TURMERIC
  20. CLOBETASOL [Concomitant]
     Active Substance: CLOBETASOL
     Route: 061
  21. ATORVASTATIN [Concomitant]
     Active Substance: ATORVASTATIN
  22. GABAPENTIN. [Concomitant]
     Active Substance: GABAPENTIN
  23. PANTOPRAZOLE [Concomitant]
     Active Substance: PANTOPRAZOLE

REACTIONS (9)
  - Pneumonia [Unknown]
  - Haemoptysis [Unknown]
  - Therapy non-responder [Unknown]
  - Oedema peripheral [Unknown]
  - Pyrexia [Unknown]
  - Pulmonary arterial pressure increased [Unknown]
  - Pulmonary arterial wedge pressure [Unknown]
  - Pulmonary vascular resistance abnormality [Unknown]
  - Dyspnoea [Unknown]

NARRATIVE: CASE EVENT DATE: 20190329
